FAERS Safety Report 21163950 (Version 2)
Quarter: 2022Q3

REPORT INFORMATION
  Report Type: Report from Study
  Country: US (occurrence: US)
  Receive Date: 20220803
  Receipt Date: 20220830
  Transmission Date: 20221027
  Serious: No
  Sender: FDA-Public Use
  Company Number: US-NOVARTISTESTPH-NVSC2022US174670

PATIENT
  Sex: Male

DRUGS (3)
  1. ENTRESTO [Suspect]
     Active Substance: SACUBITRIL\VALSARTAN
     Indication: Product used for unknown indication
     Dosage: 50 MG, BID
     Route: 048
     Dates: start: 202207
  2. METOPROLOL [Suspect]
     Active Substance: METOPROLOL
     Indication: Product used for unknown indication
     Route: 065
  3. SIMVASTATIN [Suspect]
     Active Substance: SIMVASTATIN
     Indication: Product used for unknown indication
     Route: 065

REACTIONS (9)
  - Hyperhidrosis [Unknown]
  - Hepatic enzyme increased [Recovered/Resolved]
  - Carbon dioxide increased [Unknown]
  - Glomerular filtration rate increased [Unknown]
  - Myalgia [Unknown]
  - Dizziness [Unknown]
  - Blood pressure systolic decreased [Recovering/Resolving]
  - Cough [Not Recovered/Not Resolved]
  - Blood potassium increased [Recovered/Resolved]
